FAERS Safety Report 19278809 (Version 1)
Quarter: 2021Q2

REPORT INFORMATION
  Report Type: Spontaneous
  Country: US (occurrence: US)
  Receive Date: 20210520
  Receipt Date: 20210520
  Transmission Date: 20210717
  Serious: No
  Sender: FDA-Public Use
  Company Number: US-BAYER-2021-144200

PATIENT
  Sex: Male

DRUGS (1)
  1. MIRALAX [Suspect]
     Active Substance: POLYETHYLENE GLYCOL 3350
     Indication: COLONOSCOPY
     Dosage: UNK, 238GRAMS MIXED WITH 64OZ OF WATER DOSE
     Route: 048

REACTIONS (3)
  - Product use in unapproved indication [None]
  - Product prescribing error [Unknown]
  - Off label use [None]
